FAERS Safety Report 5964180-9 (Version None)
Quarter: 2008Q4

REPORT INFORMATION
  Report Type: 
  Country: None (occurrence: None)
  Receive Date: 20081124
  Receipt Date: 20081118
  Transmission Date: 20090506
  Serious: Yes (Other)
  Sender: FDA-Public Use
  Company Number: US-AMGEN-US312042

PATIENT
  Age: 75 Year
  Sex: Female

DRUGS (4)
  1. PROCRIT [Suspect]
     Indication: ANAEMIA OF MALIGNANT DISEASE
     Route: 058
     Dates: start: 20060201
  2. ARANESP [Suspect]
     Indication: ANAEMIA OF MALIGNANT DISEASE
     Route: 058
     Dates: start: 20060101
  3. VITAMIN B-12 [Concomitant]
     Dates: start: 20080401
  4. REVLIMID [Concomitant]
     Dates: start: 20070601, end: 20080801

REACTIONS (3)
  - APLASIA PURE RED CELL [None]
  - CHOLECYSTITIS [None]
  - MULTIPLE MYELOMA [None]
